FAERS Safety Report 7232218-7 (Version None)
Quarter: 2011Q1

REPORT INFORMATION
  Report Type: 
  Country: None (occurrence: None)
  Receive Date: 20110119
  Receipt Date: 20110106
  Transmission Date: 20110831
  Serious: No
  Sender: FDA-Public Use
  Company Number: US-BIOGENIDEC-2011BI001531

PATIENT
  Age: 58 Year
  Sex: Female

DRUGS (5)
  1. TYSABRI [Suspect]
     Indication: MULTIPLE SCLEROSIS
     Route: 042
     Dates: start: 20100916
  2. TYSABRI [Suspect]
     Route: 042
     Dates: start: 20080423, end: 20080910
  3. AVONEX [Concomitant]
     Route: 030
  4. AVONEX [Concomitant]
     Indication: MULTIPLE SCLEROSIS
     Route: 030
     Dates: start: 20090401
  5. AVONEX [Concomitant]
     Route: 030
     Dates: start: 20000601, end: 20000914

REACTIONS (4)
  - URINARY TRACT DISORDER [None]
  - VISION BLURRED [None]
  - VITREOUS FLOATERS [None]
  - MUSCLE SPASTICITY [None]
